FAERS Safety Report 23249204 (Version 5)
Quarter: 2025Q1

REPORT INFORMATION
  Report Type: Report from Study
  Country: GB (occurrence: GB)
  Receive Date: 20231201
  Receipt Date: 20250323
  Transmission Date: 20250408
  Serious: Yes (Hospitalization, Other)
  Sender: ROCHE
  Company Number: GB-ROCHE-3417776

PATIENT
  Sex: Female

DRUGS (1)
  1. TOCILIZUMAB [Suspect]
     Active Substance: TOCILIZUMAB
     Indication: Product used for unknown indication
     Dosage: 1
     Route: 058
     Dates: start: 202207

REACTIONS (5)
  - Joint dislocation [Unknown]
  - Ill-defined disorder [Unknown]
  - Back disorder [Unknown]
  - Rash [Recovered/Resolved]
  - Rash [Unknown]
